FAERS Safety Report 6730476-6 (Version None)
Quarter: 2010Q2

REPORT INFORMATION
  Report Type: 
  Country: None (occurrence: None)
  Receive Date: 20100518
  Receipt Date: 20100503
  Transmission Date: 20101027
  Serious: Yes (Death)
  Sender: FDA-Public Use
  Company Number: US-ROCHE-702033

PATIENT
  Sex: Male

DRUGS (1)
  1. PEGASYS [Suspect]
     Indication: HEPATITIS C
     Dosage: ONE DOSE; 180 UNITS/ML
     Route: 058
     Dates: start: 20100127

REACTIONS (1)
  - HIV INFECTION [None]
